FAERS Safety Report 5480680-2 (Version None)
Quarter: 2007Q4

REPORT INFORMATION
  Report Type: 
  Country: None (occurrence: None)
  Receive Date: 20071003
  Receipt Date: 20070917
  Transmission Date: 20080405
  Serious: Yes (Hospitalization)
  Sender: FDA-Public Use
  Company Number: CIP07001787

PATIENT
  Age: 51 Year
  Sex: Female
  Weight: 54.4 kg

DRUGS (1)
  1. ACTONEL [Suspect]
     Indication: OSTEOPOROSIS
     Dosage: 35 MG ONCE MONTHLY, ORAL
     Route: 048
     Dates: start: 20061101, end: 20070801

REACTIONS (9)
  - ARTHRALGIA [None]
  - ERYTHEMA [None]
  - GLOMERULONEPHRITIS RAPIDLY PROGRESSIVE [None]
  - JOINT SWELLING [None]
  - JOINT WARMTH [None]
  - KIDNEY ENLARGEMENT [None]
  - MALAISE [None]
  - RENAL CORTICAL NECROSIS [None]
  - RENAL FAILURE [None]
